FAERS Safety Report 7285358-0 (Version None)
Quarter: 2011Q1

REPORT INFORMATION
  Report Type: 
  Country: None (occurrence: None)
  Receive Date: 20110210
  Receipt Date: 20110128
  Transmission Date: 20110831
  Serious: No
  Sender: FDA-Public Use
  Company Number: JP-ROCHE-758631

PATIENT
  Age: 16 Year
  Sex: Female

DRUGS (7)
  1. TAMIFLU [Suspect]
     Route: 048
     Dates: start: 20110128, end: 20110128
  2. TAMIFLU [Suspect]
     Route: 048
     Dates: start: 20110129
  3. PL [Concomitant]
     Dosage: DOSAGE UNCERTAIN, DOSE FORM REPORTED AS GRANULATED POWDER
     Route: 048
  4. MUCOSOLVAN [Concomitant]
     Dosage: DOSAGE UNCERTAIN, DOSE FORM REPORTED AS PERORAL AGENT
     Route: 048
  5. ASTOMIN [Concomitant]
     Dosage: DOSAGE UNCERTAIN, DOSE FORM REPORTED AS PERORAL AGENT
     Route: 048
  6. TAMIFLU [Suspect]
     Route: 048
     Dates: start: 20110127, end: 20110127
  7. CALONAL [Concomitant]
     Dosage: DOSAGE UNCERTAIN
     Route: 065

REACTIONS (1)
  - OVERDOSE [None]
